FAERS Safety Report 7894120-7 (Version None)
Quarter: 2011Q4

REPORT INFORMATION
  Report Type: 
  Country: None (occurrence: None)
  Receive Date: 20111104
  Receipt Date: 20111031
  Transmission Date: 20120403
  Serious: No
  Sender: FDA-Public Use
  Company Number: US-PFIZER INC-2011266017

PATIENT
  Sex: Male

DRUGS (2)
  1. GENOTROPIN [Suspect]
     Dosage: 0.9 MG, 1X/DAY
     Route: 058
  2. MELATONIN [Concomitant]
     Dosage: 1 MG, UNK

REACTIONS (2)
  - INJECTION SITE HAEMATOMA [None]
  - INJECTION SITE MASS [None]
